FAERS Safety Report 9080192 (Version 1)
Quarter: 2013Q1

REPORT INFORMATION
  Report Type: Spontaneous
  Country: US (occurrence: US)
  Receive Date: 20130218
  Receipt Date: 20130218
  Transmission Date: 20140127
  Serious: Yes (Other)
  Sender: FDA-Public Use
  Company Number: PHHY2013US013971

PATIENT
  Age: 58 Year
  Sex: 0

DRUGS (2)
  1. RIBAVIRIN [Suspect]
     Indication: CHRONIC HEPATITIS
  2. INTERFERON [Suspect]
     Indication: CHRONIC HEPATITIS

REACTIONS (7)
  - Cryoglobulinaemia [Recovered/Resolved]
  - Glomerulonephritis membranoproliferative [Recovered/Resolved]
  - Renal failure acute [Recovered/Resolved]
  - Purpura [Recovered/Resolved]
  - Arthralgia [Recovered/Resolved]
  - Pain in extremity [Recovered/Resolved]
  - Pleural effusion [Recovered/Resolved]
